FAERS Safety Report 13759806 (Version 1)
Quarter: 2017Q3

REPORT INFORMATION
  Report Type: Spontaneous
  Country: US (occurrence: US)
  Receive Date: 20170717
  Receipt Date: 20170717
  Transmission Date: 20171127
  Serious: No
  Sender: FDA-Public Use
  Company Number: US-B.I. PHARMACEUTICALS,INC./RIDGEFIELD-2017-BI-038730

PATIENT
  Sex: Male

DRUGS (1)
  1. MIRAPEX [Suspect]
     Active Substance: PRAMIPEXOLE DIHYDROCHLORIDE
     Indication: PARKINSON^S DISEASE
     Dosage: FORMULATION: TABLET; ADMINISTRATION CORRECT? NR(NOT REPORTED)
     Route: 065
     Dates: end: 201706

REACTIONS (4)
  - Insomnia [Unknown]
  - Obsessive-compulsive disorder [Unknown]
  - Aggression [Unknown]
  - Gambling disorder [Recovered/Resolved]
